FAERS Safety Report 13181465 (Version 2)
Quarter: 2017Q1

REPORT INFORMATION
  Report Type: Spontaneous
  Country: PL (occurrence: PL)
  Receive Date: 20170202
  Receipt Date: 20170214
  Transmission Date: 20170428
  Serious: Yes (Other)
  Sender: FDA-Public Use
  Company Number: PL-JNJFOC-20170124097

PATIENT
  Age: 58 Year
  Sex: Female

DRUGS (5)
  1. GEMCITABINE [Suspect]
     Active Substance: GEMCITABINE\GEMCITABINE HYDROCHLORIDE
     Indication: CLEAR CELL RENAL CELL CARCINOMA
     Route: 065
     Dates: end: 201204
  2. IFOSFAMIDE. [Suspect]
     Active Substance: IFOSFAMIDE
     Indication: CLEAR CELL RENAL CELL CARCINOMA
     Route: 065
     Dates: start: 201207
  3. DOXORUBICIN [Suspect]
     Active Substance: DOXORUBICIN
     Indication: CLEAR CELL RENAL CELL CARCINOMA
     Route: 065
     Dates: end: 201204
  4. BEVACIZUMAB [Suspect]
     Active Substance: BEVACIZUMAB
     Indication: CLEAR CELL RENAL CELL CARCINOMA
     Route: 065
     Dates: start: 200910, end: 201006
  5. TEMSIROLIMUS [Suspect]
     Active Substance: TEMSIROLIMUS
     Indication: CLEAR CELL RENAL CELL CARCINOMA
     Route: 065
     Dates: start: 200910, end: 201006

REACTIONS (4)
  - Product use issue [Unknown]
  - Neutropenia [Unknown]
  - Disease progression [Unknown]
  - Off label use [Unknown]
